FAERS Safety Report 15848784 (Version 2)
Quarter: 2019Q1

REPORT INFORMATION
  Report Type: Report from Study
  Country: US (occurrence: US)
  Receive Date: 20190121
  Receipt Date: 20190315
  Transmission Date: 20190417
  Serious: Yes (Other)
  Sender: FDA-Public Use
  Company Number: US-JNJFOC-20181206163

PATIENT
  Age: 69 Year
  Sex: Male

DRUGS (3)
  1. IMBRUVICA [Suspect]
     Active Substance: IBRUTINIB
     Indication: CHRONIC LYMPHOCYTIC LEUKAEMIA
     Route: 048
     Dates: start: 20181115, end: 20190219
  2. IMBRUVICA [Suspect]
     Active Substance: IBRUTINIB
     Indication: CHRONIC LYMPHOCYTIC LEUKAEMIA
     Route: 048
     Dates: start: 20181115, end: 20181128
  3. IMBRUVICA [Suspect]
     Active Substance: IBRUTINIB
     Indication: CHRONIC LYMPHOCYTIC LEUKAEMIA
     Route: 048
     Dates: start: 20181113

REACTIONS (6)
  - Atrial fibrillation [Recovered/Resolved]
  - Gastric haemorrhage [Recovered/Resolved]
  - Gout [Recovered/Resolved]
  - Fatigue [Recovering/Resolving]
  - Ear infection [Recovering/Resolving]
  - Tooth disorder [Unknown]

NARRATIVE: CASE EVENT DATE: 201811
